FAERS Safety Report 5778016-2 (Version None)
Quarter: 2008Q2

REPORT INFORMATION
  Report Type: 
  Country: None (occurrence: None)
  Receive Date: 20080619
  Receipt Date: 20080617
  Transmission Date: 20081010
  Serious: Yes (Disabling)
  Sender: FDA-Public Use
  Company Number: DE-BRISTOL-MYERS SQUIBB COMPANY-14231427

PATIENT
  Age: 54 Year
  Sex: Female

DRUGS (3)
  1. TAXOL [Suspect]
     Indication: BREAST CANCER
     Dosage: FREQUENCY: 7 D.
     Route: 042
     Dates: start: 20080506
  2. XELODA [Suspect]
     Indication: BREAST CANCER
     Route: 048
     Dates: start: 20080506
  3. ARANESP [Concomitant]
     Dosage: FREQUENCY: 14 D.
     Dates: start: 20080226

REACTIONS (3)
  - ONYCHOCLASIS [None]
  - PARAESTHESIA [None]
  - PAROTITIS [None]
